FAERS Safety Report 8704873 (Version 4)
Quarter: 2013Q3

REPORT INFORMATION
  Report Type: Spontaneous
  Country: GB (occurrence: GB)
  Receive Date: 20120803
  Receipt Date: 20130925
  Transmission Date: 20140515
  Serious: Yes (Hospitalization, Other)
  Sender: FDA-Public Use
  Company Number: GB-PFIZER INC-2012183674

PATIENT
  Age: 73 Year
  Sex: Female
  Weight: 76 kg

DRUGS (4)
  1. VENLAFAXINE HCL [Suspect]
     Indication: DEPRESSION
     Dosage: 225 (150MG AND 75MG), 1X/DAY
     Route: 048
     Dates: end: 20120610
  2. VENLAFAXINE HCL [Suspect]
     Dosage: 150 MG, 1X/DAY
     Route: 048
     Dates: start: 20120611
  3. MIRTAZAPINE [Concomitant]
     Dosage: 30 MG, 1X/DAY
     Route: 048
  4. LANSOPRAZOLE [Concomitant]
     Dosage: 30 MG, 1X/DAY
     Route: 048

REACTIONS (3)
  - Incorrect dose administered [Unknown]
  - Heart rate decreased [Not Recovered/Not Resolved]
  - Atrioventricular block second degree [Not Recovered/Not Resolved]
